FAERS Safety Report 25403858 (Version 2)
Quarter: 2025Q2

REPORT INFORMATION
  Report Type: Spontaneous
  Country: US (occurrence: US)
  Receive Date: 20250606
  Receipt Date: 20250627
  Transmission Date: 20250717
  Serious: No
  Sender: ROCHE
  Company Number: US-ROCHE-10000303950

PATIENT
  Age: 48 Year
  Sex: Female

DRUGS (4)
  1. OCREVUS ZUNOVO [Suspect]
     Active Substance: HYALURONIDASE-OCSQ\OCRELIZUMAB
     Indication: Multiple sclerosis
     Route: 058
     Dates: start: 20250530
  2. TYLENOL [Concomitant]
     Active Substance: ACETAMINOPHEN
  3. DEXAMETHASONE [Concomitant]
     Active Substance: DEXAMETHASONE
  4. DESLORATADINE [Concomitant]
     Active Substance: DESLORATADINE

REACTIONS (4)
  - Injection site reaction [Recovered/Resolved]
  - Abdominal pain [Recovered/Resolved]
  - Headache [Recovering/Resolving]
  - Contusion [Recovered/Resolved]

NARRATIVE: CASE EVENT DATE: 20250531
